FAERS Safety Report 17985580 (Version 1)
Quarter: 2020Q3

REPORT INFORMATION
  Report Type: Spontaneous
  Country: BR (occurrence: BR)
  Receive Date: 20200706
  Receipt Date: 20200706
  Transmission Date: 20201103
  Serious: Yes (Other)
  Sender: FDA-Public Use
  Company Number: BR-PURDUE PHARMA-CAN-2020-0011255

PATIENT
  Age: 12 Year
  Sex: Male

DRUGS (2)
  1. NON?PMN METHYLPHENIDATE HYDROCHLORIDE [Suspect]
     Active Substance: METHYLPHENIDATE HYDROCHLORIDE
     Indication: ATTENTION DEFICIT HYPERACTIVITY DISORDER
     Dosage: 20 MG, DAILY
     Route: 065
  2. NON?PMN METHYLPHENIDATE HYDROCHLORIDE [Suspect]
     Active Substance: METHYLPHENIDATE HYDROCHLORIDE
     Indication: OPPOSITIONAL DEFIANT DISORDER
     Dosage: 40 MG, DAILY (0.9MG/ KG)
     Route: 065

REACTIONS (8)
  - Ischaemia [Unknown]
  - Fatigue [Unknown]
  - Decreased appetite [Unknown]
  - Chest pain [Unknown]
  - Palpitations [Unknown]
  - Cardiac murmur [Unknown]
  - Ventricular hypertrophy [Unknown]
  - Pulmonary artery dilatation [Unknown]
